FAERS Safety Report 15007005 (Version 1)
Quarter: 2018Q2

REPORT INFORMATION
  Report Type: Spontaneous
  Country: US (occurrence: US)
  Receive Date: 20180613
  Receipt Date: 20180613
  Transmission Date: 20180711
  Serious: Yes (Hospitalization, Disabling)
  Sender: FDA-Public Use
  Company Number: US-JNJFOC-20180611368

PATIENT
  Age: 57 Year
  Sex: Male

DRUGS (1)
  1. INVOKANA [Suspect]
     Active Substance: CANAGLIFLOZIN
     Indication: DIABETES MELLITUS INADEQUATE CONTROL
     Route: 048
     Dates: start: 20160921

REACTIONS (4)
  - Diabetic foot [Not Recovered/Not Resolved]
  - Sepsis [Recovering/Resolving]
  - Limb amputation [Recovering/Resolving]
  - Gas gangrene [Recovering/Resolving]

NARRATIVE: CASE EVENT DATE: 20170316
